FAERS Safety Report 5600897-3 (Version None)
Quarter: 2007Q4

REPORT INFORMATION
  Report Type: 
  Country: None (occurrence: None)
  Receive Date: 20071228
  Receipt Date: 20070125
  Transmission Date: 20080405
  Serious: Yes (Hospitalization)
  Sender: FDA-Public Use
  Company Number: 20070028

PATIENT
  Age: 28 Year
  Sex: Female

DRUGS (1)
  1. VENOFER [Suspect]
     Dosage: 500 MG 2 X/WK X 4 INTRAVENOUS
     Route: 042
     Dates: start: 20060717, end: 20060717

REACTIONS (4)
  - ASTHENIA [None]
  - COLD SWEAT [None]
  - HYPERHIDROSIS [None]
  - HYPOTENSION [None]
